FAERS Safety Report 10423406 (Version 2)
Quarter: 2014Q4

REPORT INFORMATION
  Report Type: Spontaneous
  Country: US (occurrence: US)
  Receive Date: 20140902
  Receipt Date: 20141212
  Transmission Date: 20150528
  Serious: Yes (Other)
  Sender: FDA-Public Use
  Company Number: US-SA-2014SA115971

PATIENT
  Age: 17 Year
  Sex: Male
  Weight: 67.31 kg

DRUGS (15)
  1. CEREZYME [Suspect]
     Active Substance: IMIGLUCERASE
     Indication: GAUCHER^S DISEASE
     Dosage: DOSE:23.77 UNIT(S)/KILOGRAM BODYWEIGHT
     Route: 042
     Dates: start: 20100203
  2. ZYRTEC [Concomitant]
     Active Substance: CETIRIZINE HYDROCHLORIDE
  3. MECLIZINE [Concomitant]
     Active Substance: MECLIZINE\MECLIZINE HYDROCHLORIDE
  4. NORMAL SALINE [Concomitant]
     Active Substance: SODIUM CHLORIDE
  5. NASONEX [Concomitant]
     Active Substance: MOMETASONE FUROATE
  6. CEREZYME [Suspect]
     Active Substance: IMIGLUCERASE
     Indication: GAUCHER^S DISEASE
     Dosage: DOSE:23.77 UNIT(S)/KILOGRAM BODYWEIGHT
     Route: 042
     Dates: start: 20100203
  7. EPINEPHRINE. [Concomitant]
     Active Substance: EPINEPHRINE
  8. LIDOCAINE. [Concomitant]
     Active Substance: LIDOCAINE
  9. SUDAFED [Concomitant]
     Active Substance: PSEUDOEPHEDRINE HYDROCHLORIDE
  10. TYLENOL [Concomitant]
     Active Substance: ACETAMINOPHEN
  11. ONDANSETRON [Concomitant]
     Active Substance: ONDANSETRON
  12. DULERA [Concomitant]
     Active Substance: FORMOTEROL FUMARATE DIHYDRATE\MOMETASONE FUROATE
  13. MOTRIN [Concomitant]
     Active Substance: IBUPROFEN
  14. SODIUM CHLORIDE. [Concomitant]
     Active Substance: SODIUM CHLORIDE
  15. WATER. [Concomitant]
     Active Substance: WATER

REACTIONS (2)
  - Headache [Not Recovered/Not Resolved]
  - Synovial cyst [Unknown]

NARRATIVE: CASE EVENT DATE: 2014
